FAERS Safety Report 23193501 (Version 2)
Quarter: 2023Q4

REPORT INFORMATION
  Report Type: Spontaneous
  Country: FR (occurrence: FR)
  Receive Date: 20231116
  Receipt Date: 20231123
  Transmission Date: 20240110
  Serious: Yes (Death)
  Sender: FDA-Public Use
  Company Number: FR-ELI_LILLY_AND_COMPANY-FR202311009179

PATIENT
  Age: 74 Year
  Sex: Male

DRUGS (1)
  1. TALTZ [Suspect]
     Active Substance: IXEKIZUMAB
     Indication: Erythrodermic psoriasis
     Dosage: UNK, UNKNOWN
     Route: 058
     Dates: start: 202301

REACTIONS (4)
  - Hepatic cirrhosis [Fatal]
  - Hepatorenal syndrome [Fatal]
  - Staphylococcal infection [Fatal]
  - Skin ulcer [Fatal]

NARRATIVE: CASE EVENT DATE: 20230601
